FAERS Safety Report 22182173 (Version 1)
Quarter: 2023Q2

REPORT INFORMATION
  Report Type: Spontaneous
  Country: US (occurrence: US)
  Receive Date: 20230406
  Receipt Date: 20230406
  Transmission Date: 20230722
  Serious: No
  Sender: FDA-Public Use
  Company Number: US-SA-SAC20230405001409

PATIENT
  Sex: Male

DRUGS (2)
  1. DUPIXENT [Suspect]
     Active Substance: DUPILUMAB
     Indication: Chronic rhinosinusitis with nasal polyps
     Dosage: 300 MG, QOW
     Route: 058
  2. OXITRIPTAN [Concomitant]
     Active Substance: OXITRIPTAN
     Dosage: 100 MG, QD

REACTIONS (2)
  - Aphthous ulcer [Unknown]
  - Dry eye [Unknown]
